FAERS Safety Report 22299048 (Version 2)
Quarter: 2023Q2

REPORT INFORMATION
  Report Type: Spontaneous
  Country: US (occurrence: US)
  Receive Date: 20230509
  Receipt Date: 20230509
  Transmission Date: 20230721
  Serious: Yes (Hospitalization, Other)
  Sender: FDA-Public Use
  Company Number: US-GILEAD-2023-0627412

PATIENT
  Sex: Female

DRUGS (7)
  1. BIKTARVY [Suspect]
     Active Substance: BICTEGRAVIR SODIUM\EMTRICITABINE\TENOFOVIR ALAFENAMIDE FUMARATE
     Indication: HIV infection
     Dosage: 1 DOSAGE FORM, QD
     Route: 048
  2. ASPIRIN [Concomitant]
     Active Substance: ASPIRIN
  3. PRAVASTATIN SODIUM [Concomitant]
     Active Substance: PRAVASTATIN SODIUM
  4. VITAMIN D NOS [Concomitant]
     Active Substance: VITAMIN D NOS
  5. POTASSIUM [Concomitant]
     Active Substance: POTASSIUM
  6. HYDROCHLOROTHIAZIDE\TRIAMTERENE [Concomitant]
     Active Substance: HYDROCHLOROTHIAZIDE\TRIAMTERENE
  7. PEPCID RPD [Concomitant]
     Active Substance: FAMOTIDINE

REACTIONS (4)
  - Pain in extremity [Unknown]
  - Neuropathy peripheral [Not Recovered/Not Resolved]
  - Blood HIV RNA [Unknown]
  - Product use issue [Recovered/Resolved]
